FAERS Safety Report 16328223 (Version 2)
Quarter: 2019Q2

REPORT INFORMATION
  Report Type: Spontaneous
  Country: US (occurrence: US)
  Receive Date: 20190518
  Receipt Date: 20190601
  Transmission Date: 20190711
  Serious: Yes (Other)
  Sender: FDA-Public Use
  Company Number: US-AUROBINDO-AUR-APL-2019-027451

PATIENT

DRUGS (1)
  1. VALSARTAN. [Suspect]
     Active Substance: VALSARTAN
     Indication: PRODUCT USED FOR UNKNOWN INDICATION
     Dosage: UNK
     Route: 065
     Dates: start: 201602, end: 201811

REACTIONS (3)
  - Mental disorder [Unknown]
  - Gastrointestinal carcinoma [Unknown]
  - Emotional distress [Unknown]

NARRATIVE: CASE EVENT DATE: 20180615
